FAERS Safety Report 19619325 (Version 1)
Quarter: 2021Q3

REPORT INFORMATION
  Report Type: Spontaneous
  Country: PL (occurrence: PL)
  Receive Date: 20210728
  Receipt Date: 20210728
  Transmission Date: 20211014
  Serious: Yes (Other)
  Sender: FDA-Public Use
  Company Number: NVSC2021PL164085

PATIENT
  Age: 41 Year
  Sex: Male
  Weight: 79 kg

DRUGS (2)
  1. GEMCITABINE. [Suspect]
     Active Substance: GEMCITABINE
     Indication: TESTIS CANCER
     Dosage: 1000 MG/M2
     Route: 042
     Dates: start: 20180924, end: 20181001
  2. OXALIPLATIN. [Suspect]
     Active Substance: OXALIPLATIN
     Indication: TESTIS CANCER
     Dosage: 190 MG/M2
     Route: 042
     Dates: start: 20180924, end: 20180924

REACTIONS (1)
  - Neutropenia [Unknown]

NARRATIVE: CASE EVENT DATE: 20181015
